FAERS Safety Report 15614845 (Version 2)
Quarter: 2018Q4

REPORT INFORMATION
  Report Type: Spontaneous
  Country: JP (occurrence: JP)
  Receive Date: 20181114
  Receipt Date: 20181203
  Transmission Date: 20190205
  Serious: Yes (Death)
  Sender: FDA-Public Use
  Company Number: JP-SUN PHARMACEUTICAL INDUSTRIES LTD-2018R3-190776

PATIENT
  Age: 56 Year
  Sex: Male

DRUGS (4)
  1. GABALON [Suspect]
     Active Substance: BACLOFEN
     Indication: AUTONOMIC DYSREFLEXIA
  2. EPERISONE [Suspect]
     Active Substance: EPERISONE
     Indication: AUTONOMIC DYSREFLEXIA
  3. EPERISONE [Suspect]
     Active Substance: EPERISONE
     Indication: MUSCLE SPASTICITY
     Route: 065
  4. GABALON [Suspect]
     Active Substance: BACLOFEN
     Indication: MUSCLE SPASTICITY
     Route: 048

REACTIONS (1)
  - Posterior reversible encephalopathy syndrome [Fatal]
